FAERS Safety Report 18770061 (Version 1)
Quarter: 2021Q1

REPORT INFORMATION
  Report Type: Spontaneous
  Country: CA (occurrence: CA)
  Receive Date: 20210121
  Receipt Date: 20210121
  Transmission Date: 20210419
  Serious: No
  Sender: FDA-Public Use
  Company Number: CA-TAKEDA-CA201500851

PATIENT
  Age: 14 Year
  Sex: Female
  Weight: 57.5 kg

DRUGS (4)
  1. INTUNIV [Suspect]
     Active Substance: GUANFACINE HYDROCHLORIDE
     Indication: ATTENTION DEFICIT HYPERACTIVITY DISORDER
     Dosage: 3 MG, UNKNOWN (PER DAY)
     Route: 048
     Dates: start: 20140814
  2. VYVANSE [Concomitant]
     Active Substance: LISDEXAMFETAMINE DIMESYLATE
     Indication: ATTENTION DEFICIT HYPERACTIVITY DISORDER
     Dosage: 40 MG, 1X/DAY:QD
     Route: 048
     Dates: start: 201404
  3. INTUNIV [Suspect]
     Active Substance: GUANFACINE HYDROCHLORIDE
     Dosage: 2 MG, UNKNOWN (PER DAY)
     Route: 048
     Dates: start: 20150106
  4. MONTELUKAST [Concomitant]
     Active Substance: MONTELUKAST SODIUM
     Indication: ASTHMA
     Dosage: 10 MG, UNKNOWN
     Route: 065
     Dates: start: 2012

REACTIONS (2)
  - Raynaud^s phenomenon [Recovered/Resolved]
  - Chillblains [Recovered/Resolved]

NARRATIVE: CASE EVENT DATE: 20141115
